FAERS Safety Report 15649860 (Version 21)
Quarter: 2021Q2

REPORT INFORMATION
  Report Type: Report from Study
  Country: BR (occurrence: BR)
  Receive Date: 20181123
  Receipt Date: 20210524
  Transmission Date: 20210716
  Serious: Yes (Disabling, Other)
  Sender: FDA-Public Use
  Company Number: PHHY2018BR150977

PATIENT
  Age: 57 Year
  Sex: Male
  Weight: 95 kg

DRUGS (16)
  1. COSENTYX [Suspect]
     Active Substance: SECUKINUMAB
     Dosage: 300 MG
     Route: 065
     Dates: start: 20210112
  2. CAPTOPRIL. [Suspect]
     Active Substance: CAPTOPRIL
     Indication: PRODUCT USED FOR UNKNOWN INDICATION
     Dosage: UNK
     Route: 065
  3. LOSARTAN. [Suspect]
     Active Substance: LOSARTAN
     Indication: PRODUCT USED FOR UNKNOWN INDICATION
     Dosage: UNK
     Route: 065
  4. COSENTYX [Suspect]
     Active Substance: SECUKINUMAB
     Dosage: UNK
     Route: 065
     Dates: start: 20210312
  5. ENBREL [Suspect]
     Active Substance: ETANERCEPT
     Indication: PRODUCT USED FOR UNKNOWN INDICATION
     Dosage: UNK
     Route: 065
     Dates: start: 2008, end: 2018
  6. METHOTREXATE. [Suspect]
     Active Substance: METHOTREXATE
     Indication: PRODUCT USED FOR UNKNOWN INDICATION
     Dosage: 10 MG
     Route: 065
  7. LEFLUNOMIDE. [Concomitant]
     Active Substance: LEFLUNOMIDE
     Indication: PRODUCT USED FOR UNKNOWN INDICATION
     Dosage: UNK
     Route: 065
  8. METICORTEN [Concomitant]
     Active Substance: PREDNISONE
     Indication: PRODUCT USED FOR UNKNOWN INDICATION
     Dosage: UNK
     Route: 065
  9. COSENTYX [Suspect]
     Active Substance: SECUKINUMAB
     Indication: PSORIATIC ARTHROPATHY
     Dosage: 300 MG, QW
     Route: 058
     Dates: start: 20180515
  10. COSENTYX [Suspect]
     Active Substance: SECUKINUMAB
     Dosage: 300 MG, QMO
     Route: 058
  11. COSENTYX [Suspect]
     Active Substance: SECUKINUMAB
     Dosage: 300 MG, QMO
     Route: 058
     Dates: start: 20181114
  12. COSENTYX [Suspect]
     Active Substance: SECUKINUMAB
     Dosage: UNK
     Route: 065
     Dates: start: 20190320
  13. CYCLOBENZAPRINE. [Concomitant]
     Active Substance: CYCLOBENZAPRINE
     Indication: PRODUCT USED FOR UNKNOWN INDICATION
     Dosage: UNK
     Route: 065
  14. COSENTYX [Suspect]
     Active Substance: SECUKINUMAB
     Dosage: UNK
     Route: 065
     Dates: start: 20190917
  15. COSENTYX [Suspect]
     Active Substance: SECUKINUMAB
     Dosage: 300 MG, QMO
     Route: 058
     Dates: start: 20181015
  16. METHOTREXATE. [Suspect]
     Active Substance: METHOTREXATE
     Dosage: UNK, QW (EVERY TUESDAY)
     Route: 065

REACTIONS (67)
  - Fall [Unknown]
  - Purulence [Unknown]
  - Joint dislocation [Not Recovered/Not Resolved]
  - Application site pain [Recovered/Resolved]
  - Therapeutic response shortened [Unknown]
  - Diabetes mellitus [Unknown]
  - Weight fluctuation [Recovered/Resolved]
  - Bone pain [Unknown]
  - Arthropathy [Unknown]
  - Cataract [Recovered/Resolved]
  - Pain [Recovering/Resolving]
  - Diabetes mellitus [Not Recovered/Not Resolved]
  - Chills [Not Recovered/Not Resolved]
  - Infection [Unknown]
  - Blood pressure inadequately controlled [Not Recovered/Not Resolved]
  - Asthenia [Unknown]
  - Feeling of despair [Unknown]
  - Osteoarthritis [Unknown]
  - Blood triglycerides abnormal [Unknown]
  - Eye pain [Unknown]
  - Hepatitis [Unknown]
  - Diarrhoea haemorrhagic [Unknown]
  - Ligament rupture [Unknown]
  - Tendon injury [Not Recovered/Not Resolved]
  - Drug resistance [Not Recovered/Not Resolved]
  - Sleep disorder [Not Recovered/Not Resolved]
  - Peripheral swelling [Unknown]
  - Concomitant disease aggravated [Not Recovered/Not Resolved]
  - Urine output increased [Unknown]
  - Influenza [Unknown]
  - Glaucoma [Unknown]
  - Arthritis [Not Recovered/Not Resolved]
  - Dyspnoea [Unknown]
  - Feeling abnormal [Recovered/Resolved]
  - Joint swelling [Not Recovered/Not Resolved]
  - Sciatica [Recovering/Resolving]
  - Ageusia [Unknown]
  - Finger deformity [Recovered/Resolved]
  - Product dose omission issue [Unknown]
  - Gait inability [Unknown]
  - Dry mouth [Unknown]
  - Gout [Not Recovered/Not Resolved]
  - Rib fracture [Unknown]
  - Pain in extremity [Recovering/Resolving]
  - Tremor [Unknown]
  - Vision blurred [Not Recovered/Not Resolved]
  - Hypoaesthesia [Not Recovered/Not Resolved]
  - Fluid retention [Recovered/Resolved]
  - Pyrexia [Unknown]
  - Cough [Unknown]
  - Muscle spasms [Recovered/Resolved]
  - Drug ineffective [Unknown]
  - Visual impairment [Not Recovered/Not Resolved]
  - Decreased appetite [Unknown]
  - Dizziness [Unknown]
  - Back pain [Recovering/Resolving]
  - Joint stiffness [Not Recovered/Not Resolved]
  - Thirst [Unknown]
  - Limb injury [Unknown]
  - Hyperhidrosis [Unknown]
  - Malaise [Unknown]
  - Paraesthesia [Unknown]
  - Gait disturbance [Recovering/Resolving]
  - Heart rate abnormal [Recovered/Resolved]
  - Movement disorder [Recovering/Resolving]
  - Decreased interest [Recovered/Resolved]
  - Arthralgia [Unknown]

NARRATIVE: CASE EVENT DATE: 20180515
